FAERS Safety Report 25638431 (Version 2)
Quarter: 2025Q3

REPORT INFORMATION
  Report Type: Spontaneous
  Country: EU (occurrence: EU)
  Receive Date: 20250804
  Receipt Date: 20250813
  Transmission Date: 20251020
  Serious: Yes (Hospitalization, Other)
  Sender: JOHNSON AND JOHNSON
  Company Number: EU-JNJFOC-20250802499

PATIENT
  Age: 62 Year
  Sex: Female

DRUGS (3)
  1. XARELTO [Suspect]
     Active Substance: RIVAROXABAN
     Indication: Arrhythmia
     Dosage: 20 MG, QD
     Route: 048
  2. FLECAINIDE [Concomitant]
     Active Substance: FLECAINIDE
     Indication: Product used for unknown indication
  3. ATENOLOL [Concomitant]
     Active Substance: ATENOLOL
     Indication: Product used for unknown indication

REACTIONS (9)
  - Eye haemorrhage [Recovering/Resolving]
  - Atrial fibrillation [Unknown]
  - Product use in unapproved indication [Unknown]
  - Gingival bleeding [Recovered/Resolved]
  - Haemoptysis [Recovered/Resolved]
  - Drug intolerance [Unknown]
  - Ocular discomfort [Unknown]
  - Tachycardia paroxysmal [Unknown]
  - Cardiac ablation [Unknown]

NARRATIVE: CASE EVENT DATE: 20160101
